FAERS Safety Report 6222094-3 (Version None)
Quarter: 2009Q2

REPORT INFORMATION
  Report Type: 
  Country: None (occurrence: None)
  Receive Date: 20090608
  Receipt Date: 20090608
  Transmission Date: 20091009
  Serious: Yes (Death)
  Sender: FDA-Public Use
  Company Number: None

PATIENT
  Age: 43 Year
  Sex: Female
  Weight: 81.6475 kg

DRUGS (2)
  1. EFFEXOR XR [Suspect]
     Indication: DEPRESSION
     Dosage: 150MG QD OTHER
     Route: 050
     Dates: start: 20090101, end: 20090515
  2. TYLOX [Suspect]
     Indication: HEADACHE
     Dosage: Q 4HRS OTHER
     Route: 050
     Dates: start: 20090201, end: 20090515

REACTIONS (7)
  - ABDOMINAL DISTENSION [None]
  - ABDOMINAL PAIN [None]
  - ACCIDENT AT WORK [None]
  - ARRHYTHMIA [None]
  - DYSPNOEA [None]
  - HEADACHE [None]
  - SEROTONIN SYNDROME [None]
